FAERS Safety Report 10723313 (Version 2)
Quarter: 2015Q1

REPORT INFORMATION
  Report Type: Spontaneous
  Country: US (occurrence: None)
  Receive Date: 20150114
  Receipt Date: 20150209
  Transmission Date: 20150721
  Serious: Yes (Death)
  Sender: FDA-Public Use
  Company Number: 1713747-2015-99912

PATIENT
  Age: 47 Year
  Sex: Male

DRUGS (1)
  1. DELFLEX NEUTRAL PH WITH ATTACHED STAY-SAFE EXCHANGE SET [Suspect]
     Active Substance: CALCIUM CHLORIDE\DEXTROSE MONOHYDRATE\MAGNESIUM CHLORIDE\SODIUM CHLORIDE\SODIUM LACTATE
     Indication: PERITONEAL DIALYSIS
     Route: 033
     Dates: start: 20141120, end: 20141226

REACTIONS (3)
  - Renal failure [None]
  - Death [None]
  - Staphylococcal infection [None]

NARRATIVE: CASE EVENT DATE: 20141226
